FAERS Safety Report 5589367-9 (Version None)
Quarter: 2008Q1

REPORT INFORMATION
  Report Type: 
  Country: None (occurrence: None)
  Receive Date: 20080110
  Receipt Date: 20080110
  Transmission Date: 20080703
  Serious: Yes (Death)
  Sender: FDA-Public Use
  Company Number: None

PATIENT
  Age: 58 Year
  Sex: Male

DRUGS (2)
  1. LAPATINIB [Suspect]
     Indication: PANCREATIC CARCINOMA
     Dosage: 1500MG DAILY PO
     Route: 048
     Dates: start: 20071121, end: 20071208
  2. GEMCITABINE [Suspect]
     Indication: PANCREATIC CARCINOMA
     Dosage: 1GM/M2 WKLY X 3 IV
     Route: 042
     Dates: start: 20071207

REACTIONS (2)
  - ISCHAEMIA [None]
  - NERVOUS SYSTEM DISORDER [None]
